FAERS Safety Report 5315298-5 (Version None)
Quarter: 2007Q2

REPORT INFORMATION
  Report Type: 
  Country: None (occurrence: None)
  Receive Date: 20070502
  Receipt Date: 20070420
  Transmission Date: 20071010
  Serious: Yes (Other)
  Sender: FDA-Public Use
  Company Number: JP-PFIZER INC-2007032716

PATIENT
  Age: 73 Year
  Sex: Male

DRUGS (14)
  1. ALDACTONE [Suspect]
     Dosage: DAILY DOSE:25MG
     Route: 048
  2. ALDACTONE [Suspect]
     Dosage: DAILY DOSE:12.5MG
     Route: 048
  3. BLOPRESS [Concomitant]
  4. MEVALOTIN [Concomitant]
  5. LENDORMIN [Concomitant]
  6. ARTIST [Concomitant]
  7. DIGOXIN [Concomitant]
  8. MAGNESIUM OXIDE [Concomitant]
  9. PURSENNID [Concomitant]
  10. DILTIAZEM HCL [Concomitant]
  11. ADALAT [Concomitant]
  12. LASIX [Concomitant]
  13. ASPARA K [Concomitant]
  14. HICEE [Concomitant]

REACTIONS (3)
  - BREAST MASS [None]
  - BREAST PAIN [None]
  - GYNAECOMASTIA [None]
